FAERS Safety Report 5093833-2 (Version None)
Quarter: 2006Q3

REPORT INFORMATION
  Report Type: 
  Country: None (occurrence: None)
  Receive Date: 20060831
  Receipt Date: 20060821
  Transmission Date: 20061208
  Serious: Yes (Other)
  Sender: FDA-Public Use
  Company Number: 2006AC01558

PATIENT
  Age: 50 Year
  Sex: Female

DRUGS (4)
  1. MEROPENEM [Suspect]
     Indication: PNEUMONIA
     Route: 042
  2. VALPROIC ACID [Interacting]
     Indication: EPILEPSY
  3. VALPROIC ACID [Interacting]
     Dosage: GRADUALLY INCREASED TO 2750 MG
  4. VALPROIC ACID [Interacting]

REACTIONS (5)
  - ANTICONVULSANT DRUG LEVEL BELOW THERAPEUTIC [None]
  - DRUG INTERACTION [None]
  - DRUG LEVEL BELOW THERAPEUTIC [None]
  - MYOCLONIC EPILEPSY [None]
  - PNEUMONIA [None]
